FAERS Safety Report 25305584 (Version 1)
Quarter: 2025Q2

REPORT INFORMATION
  Report Type: Spontaneous
  Country: US (occurrence: US)
  Receive Date: 20250513
  Receipt Date: 20250513
  Transmission Date: 20250716
  Serious: No
  Sender: MERCK SHARP & DOHME LLC
  Company Number: US-009507513-2276610

PATIENT
  Sex: Female
  Weight: 70.7 kg

DRUGS (17)
  1. SOTATERCEPT [Suspect]
     Active Substance: SOTATERCEPT
     Indication: Product used for unknown indication
  2. SOTATERCEPT [Suspect]
     Active Substance: SOTATERCEPT
  3. SOTATERCEPT [Suspect]
     Active Substance: SOTATERCEPT
  4. SOTATERCEPT [Suspect]
     Active Substance: SOTATERCEPT
  5. REMODULIN [Suspect]
     Active Substance: TREPROSTINIL
     Indication: Pulmonary arterial hypertension
     Route: 041
     Dates: start: 20250305
  6. FAMOTIDINE [Concomitant]
     Active Substance: FAMOTIDINE
  7. DILTIAZEM [Concomitant]
     Active Substance: DILTIAZEM
  8. FOLIC ACID [Concomitant]
     Active Substance: FOLIC ACID
  9. MAGNESIUM [Concomitant]
     Active Substance: MAGNESIUM
  10. TADALAFIL [Concomitant]
     Active Substance: TADALAFIL
  11. ELIQUIS [Concomitant]
     Active Substance: APIXABAN
  12. VITAMIN D [Concomitant]
     Active Substance: VITAMIN D NOS
  13. POTASSIUM [Concomitant]
     Active Substance: POTASSIUM
  14. LETAIRIS [Concomitant]
     Active Substance: AMBRISENTAN
  15. TYLENOL EXTRA STRENGTH [Concomitant]
     Active Substance: ACETAMINOPHEN
  16. LORATADINE [Concomitant]
     Active Substance: LORATADINE
  17. FERROUS SULFATE [Concomitant]
     Active Substance: FERROUS SULFATE

REACTIONS (1)
  - Haemoglobin increased [Unknown]
